FAERS Safety Report 5011344-7 (Version None)
Quarter: 2006Q2

REPORT INFORMATION
  Report Type: 
  Country: None (occurrence: None)
  Receive Date: 20060404
  Receipt Date: 20060109
  Transmission Date: 20061013
  Serious: No
  Sender: FDA-Public Use
  Company Number: US200601001568

PATIENT
  Age: 53 Year
  Sex: Female

DRUGS (3)
  1. CYMBALTA [Suspect]
     Dosage: 90 MG; SEE IMAGE
     Dates: start: 20050101
  2. CYMBALTA [Suspect]
     Dosage: 90 MG; SEE IMAGE
     Dates: start: 20050101
  3. CYMBALTA [Suspect]
     Dosage: 90 MG; SEE IMAGE
     Dates: start: 20050201

REACTIONS (3)
  - BLOOD PRESSURE INCREASED [None]
  - DEPRESSION [None]
  - HEADACHE [None]
